FAERS Safety Report 6881834-0 (Version None)
Quarter: 2010Q3

REPORT INFORMATION
  Report Type: 
  Country: None (occurrence: None)
  Receive Date: 20100728
  Receipt Date: 20100728
  Transmission Date: 20110219
  Serious: Yes (Other)
  Sender: FDA-Public Use
  Company Number: None

PATIENT
  Age: 54 Year
  Sex: Male
  Weight: 42.6381 kg

DRUGS (2)
  1. WARFARIN SODIUM [Suspect]
     Indication: DEEP VEIN THROMBOSIS
     Dosage: 10MG + 7.5MG
  2. WARFARIN SODIUM [Suspect]
     Indication: DILATATION VENTRICULAR
     Dosage: 10MG + 7.5MG

REACTIONS (1)
  - DRUG INTOLERANCE [None]
